FAERS Safety Report 14450482 (Version 5)
Quarter: 2019Q3

REPORT INFORMATION
  Report Type: Report from Study
  Country: DE (occurrence: DE)
  Receive Date: 20180129
  Receipt Date: 20190911
  Transmission Date: 20191004
  Serious: Yes (Other)
  Sender: FDA-Public Use
  Company Number: DE-INCYTE CORPORATION-2018IN000562

PATIENT

DRUGS (9)
  1. METOHEXAL                          /00376902/ [Concomitant]
     Active Substance: METOPROLOL SUCCINATE
     Indication: ATRIAL FIBRILLATION
     Dosage: 95 MG, QD
     Route: 048
  2. ALLOPURINOL. [Concomitant]
     Active Substance: ALLOPURINOL
     Indication: PRODUCT USED FOR UNKNOWN INDICATION
     Dosage: 0.5 DF, QD
     Route: 048
     Dates: start: 20091102
  3. TELMISARTAN. [Concomitant]
     Active Substance: TELMISARTAN
     Indication: HYPERTENSION
     Dosage: 1 DF, QD (80/12.5MG)
     Route: 048
     Dates: start: 20170316, end: 20180111
  4. HERPES VIRUS VACCINE [Concomitant]
     Active Substance: HERPES SIMPLEX VACCINE
     Indication: PROPHYLAXIS
     Dosage: 0.5 ML, ONCE/SINGLE
     Route: 030
     Dates: start: 20190829, end: 20190829
  5. JAKAVI [Suspect]
     Active Substance: RUXOLITINIB
     Dosage: 15 MG, BID
     Route: 048
     Dates: start: 20180215, end: 20180806
  6. JAKAVI [Suspect]
     Active Substance: RUXOLITINIB
     Indication: POLYCYTHAEMIA VERA
     Dosage: 10 MG, BID
     Route: 048
     Dates: start: 20170925, end: 20180214
  7. JAKAVI [Suspect]
     Active Substance: RUXOLITINIB
     Dosage: 20 MG, BID
     Route: 048
     Dates: start: 20180807
  8. FALITHROM [Concomitant]
     Active Substance: PHENPROCOUMON
     Indication: DEEP VEIN THROMBOSIS
     Dosage: 3 MG, UNK DEPENDING ON INR VALUE (TO ADJUST INR AS 2-3)
     Route: 048
  9. ELIQUIS [Concomitant]
     Active Substance: APIXABAN
     Indication: ATRIAL FIBRILLATION
     Dosage: 2.5 MG, BID (1-0-1)
     Route: 048
     Dates: start: 20181122

REACTIONS (2)
  - Urinary tract infection [Recovered/Resolved]
  - Hypertension [Not Recovered/Not Resolved]

NARRATIVE: CASE EVENT DATE: 20171019
